FAERS Safety Report 24422151 (Version 1)
Quarter: 2024Q4

REPORT INFORMATION
  Report Type: Spontaneous
  Country: SG (occurrence: SG)
  Receive Date: 20241010
  Receipt Date: 20241010
  Transmission Date: 20250114
  Serious: Yes (Other)
  Sender: SANOFI AVENTIS
  Company Number: SG-SA-2024SA287634

PATIENT
  Age: 79 Year
  Sex: Female

DRUGS (1)
  1. DOCETAXEL [Suspect]
     Active Substance: DOCETAXEL
     Dosage: UNK
     Route: 042

REACTIONS (3)
  - Chest discomfort [Unknown]
  - Oxygen saturation decreased [Unknown]
  - Vomiting [Unknown]
